FAERS Safety Report 21785102 (Version 2)
Quarter: 2022Q4

REPORT INFORMATION
  Report Type: Spontaneous
  Country: CN (occurrence: CN)
  Receive Date: 20221227
  Receipt Date: 20221230
  Transmission Date: 20230113
  Serious: Yes (Hospitalization, Other)
  Sender: FDA-Public Use
  Company Number: CN-PFIZER INC-PV202200129268

PATIENT
  Age: 69 Year
  Sex: Male
  Weight: 55 kg

DRUGS (4)
  1. SOLU-MEDROL [Suspect]
     Active Substance: METHYLPREDNISOLONE SODIUM SUCCINATE
     Indication: Drug eruption
     Dosage: 40.000 MG, 1X/DAY
     Route: 041
     Dates: start: 20221017, end: 20221021
  2. SOLU-MEDROL [Suspect]
     Active Substance: METHYLPREDNISOLONE SODIUM SUCCINATE
     Indication: Hepatic cancer
  3. CYSTEINE\GLYCINE\GLYCYRRHIZIN [Suspect]
     Active Substance: CYSTEINE\GLYCINE\GLYCYRRHIZIN
     Indication: Drug eruption
     Dosage: 120.000 MG, 1X/DAY
     Route: 041
     Dates: start: 20221011, end: 20221024
  4. CYSTEINE\GLYCINE\GLYCYRRHIZIN [Suspect]
     Active Substance: CYSTEINE\GLYCINE\GLYCYRRHIZIN
     Indication: Hepatic cancer

REACTIONS (2)
  - Diabetes mellitus [Recovering/Resolving]
  - Blood glucose increased [Recovering/Resolving]

NARRATIVE: CASE EVENT DATE: 20221020
